FAERS Safety Report 19410621 (Version 1)
Quarter: 2021Q2

REPORT INFORMATION
  Report Type: Spontaneous
  Country: US (occurrence: US)
  Receive Date: 20210612
  Receipt Date: 20210612
  Transmission Date: 20210717
  Serious: No
  Sender: FDA-Public Use
  Company Number: None

PATIENT
  Sex: Female

DRUGS (1)
  1. HUMIRA [Suspect]
     Active Substance: ADALIMUMAB
     Indication: HIDRADENITIS
     Route: 058
     Dates: start: 20200310

REACTIONS (6)
  - Vision blurred [None]
  - Dry eye [None]
  - Abdominal pain [None]
  - Anaemia [None]
  - Melaena [None]
  - Gastrooesophageal reflux disease [None]
